FAERS Safety Report 5333529-2 (Version None)
Quarter: 2007Q1

REPORT INFORMATION
  Report Type: 
  Country: None (occurrence: None)
  Receive Date: 20070308
  Receipt Date: 20061220
  Transmission Date: 20070707
  Serious: No
  Sender: FDA-Public Use
  Company Number: 2006-BP-13123BP

PATIENT
  Age: 65 Year
  Sex: Female

DRUGS (9)
  1. SPIRIVA [Suspect]
     Indication: CHRONIC OBSTRUCTIVE PULMONARY DISEASE
     Dosage: 18 MG (18 MCG, 1 IN 1 D), IH
     Route: 055
     Dates: start: 20060922, end: 20060927
  2. CELEBREX [Concomitant]
  3. TRIAMTERENE (TRIAMNTERENE) [Concomitant]
  4. LOPRESSOR [Concomitant]
  5. CLONOPIN [Concomitant]
  6. ZOLOFT [Concomitant]
  7. VALIUM [Concomitant]
  8. METHACARBOL (ALL OTHER THERAPEUTIC PRODUCTS) [Concomitant]
  9. TRIAMPHENOL (ALL OTHER THERAPEUTIC PRODUCTS) [Concomitant]

REACTIONS (4)
  - ABASIA [None]
  - CHEST DISCOMFORT [None]
  - DYSPNOEA [None]
  - MUSCULOSKELETAL CHEST PAIN [None]
